FAERS Safety Report 20603781 (Version 1)
Quarter: 2022Q1

REPORT INFORMATION
  Report Type: Spontaneous
  Country: IE (occurrence: IE)
  Receive Date: 20220316
  Receipt Date: 20220316
  Transmission Date: 20220424
  Serious: Yes (Other)
  Sender: FDA-Public Use
  Company Number: IE-ANIPHARMA-2022-IE-000003

PATIENT
  Age: 49 Year
  Sex: Female

DRUGS (1)
  1. IBUPROFEN [Suspect]
     Active Substance: IBUPROFEN
     Indication: Arthralgia

REACTIONS (4)
  - Intestinal stenosis [Unknown]
  - Small intestine ulcer [Unknown]
  - Anaemia [Recovered/Resolved]
  - Abdominal pain [Recovered/Resolved]
